FAERS Safety Report 6161254-7 (Version None)
Quarter: 2009Q2

REPORT INFORMATION
  Report Type: 
  Country: None (occurrence: None)
  Receive Date: 20090417
  Receipt Date: 20090417
  Transmission Date: 20091009
  Serious: No
  Sender: FDA-Public Use
  Company Number: None

PATIENT
  Sex: Female
  Weight: 71.6683 kg

DRUGS (1)
  1. CARDIOLITE [Suspect]
     Dosage: 30.7
     Dates: start: 20090409

REACTIONS (2)
  - BLOOD PRESSURE DECREASED [None]
  - PRESYNCOPE [None]
